FAERS Safety Report 10244481 (Version 1)
Quarter: 2014Q2

REPORT INFORMATION
  Report Type: Spontaneous
  Country: DE (occurrence: DE)
  Receive Date: 20140618
  Receipt Date: 20140618
  Transmission Date: 20141212
  Serious: Yes (Hospitalization)
  Sender: FDA-Public Use
  Company Number: PHHY2014DE075175

PATIENT
  Age: 16 Year
  Sex: Female

DRUGS (9)
  1. RITALIN [Suspect]
     Indication: ATTENTION DEFICIT/HYPERACTIVITY DISORDER
     Dosage: 10 MG PER DAY
     Dates: start: 200701
  2. RITALIN [Suspect]
     Dosage: 20 MG, QID
  3. RITALIN [Suspect]
     Dosage: 15 MG PER DAY
     Dates: start: 200802
  4. RITALIN [Suspect]
     Dosage: 20 MG, ONCE MORNING
     Dates: start: 200807
  5. ATOMOXETINE [Suspect]
     Dosage: 60 MG PER DAY
     Dates: start: 200801, end: 200802
  6. ATOMOXETINE [Suspect]
     Dosage: 40 MG PER DAY
     Dates: start: 200803
  7. MELATONIN [Suspect]
     Indication: SLEEP DISORDER
  8. NOVYNETTE [Suspect]
     Dosage: UNK
     Dates: start: 200807
  9. EQUASYM [Concomitant]
     Dosage: 20 MG, PER DAY
     Dates: start: 200803, end: 200807

REACTIONS (7)
  - Thrombosis [Unknown]
  - Tachycardia [Unknown]
  - Sleep disorder [Unknown]
  - Hypertension [Unknown]
  - Weight decreased [Unknown]
  - Headache [Unknown]
  - Fatigue [Recovering/Resolving]
